FAERS Safety Report 14201941 (Version 2)
Quarter: 2018Q1

REPORT INFORMATION
  Report Type: Report from Study
  Country: JP (occurrence: JP)
  Receive Date: 20171117
  Receipt Date: 20180108
  Transmission Date: 20180508
  Serious: Yes (Life-Threatening)
  Sender: FDA-Public Use
  Company Number: JP-CELGENEUS-JPN-20171105187

PATIENT
  Age: 76 Year
  Sex: Male
  Weight: 46 kg

DRUGS (32)
  1. AMBROXOL HYDROCHLORIDE [Concomitant]
     Active Substance: AMBROXOL HYDROCHLORIDE
     Indication: PRODUCT USED FOR UNKNOWN INDICATION
     Dosage: 45 MILLIGRAM
     Route: 048
     Dates: start: 20121009
  2. VIDAZA [Suspect]
     Active Substance: AZACITIDINE
     Dosage: 37.5 MG/M2
     Route: 041
     Dates: start: 20120705, end: 20120711
  3. VIDAZA [Suspect]
     Active Substance: AZACITIDINE
     Indication: MYELODYSPLASTIC SYNDROME
     Dosage: 75 MILLIGRAM
     Route: 041
     Dates: start: 20120509, end: 20120515
  4. VIDAZA [Suspect]
     Active Substance: AZACITIDINE
     Dosage: 37.5 MG/M2
     Route: 041
     Dates: start: 20120905, end: 20120911
  5. VIDAZA [Suspect]
     Active Substance: AZACITIDINE
     Dosage: 50 MG/M2
     Route: 041
     Dates: start: 20130313, end: 20130319
  6. VIDAZA [Suspect]
     Active Substance: AZACITIDINE
     Dosage: 50 MG/M2
     Route: 041
     Dates: start: 20130509, end: 20130515
  7. VIDAZA [Suspect]
     Active Substance: AZACITIDINE
     Dosage: 40 MG/M2
     Route: 041
     Dates: start: 20130910, end: 20130916
  8. VIDAZA [Suspect]
     Active Substance: AZACITIDINE
     Dosage: 50 MG/M2
     Route: 041
     Dates: start: 20121114, end: 20121120
  9. FAMOTIDINE. [Concomitant]
     Active Substance: FAMOTIDINE
     Indication: PRODUCT USED FOR UNKNOWN INDICATION
     Dosage: 20 MILLIGRAM
     Route: 048
  10. YOKUKANSAN [Concomitant]
     Active Substance: HERBALS
     Indication: PRODUCT USED FOR UNKNOWN INDICATION
     Dosage: 7.5 GRAM
     Route: 048
     Dates: end: 20120711
  11. MEROPENEM HYDRATE [Concomitant]
     Active Substance: MEROPENEM
     Indication: PRODUCT USED FOR UNKNOWN INDICATION
     Dosage: 3 GRAM
     Route: 041
     Dates: start: 20130610, end: 20130617
  12. VIDAZA [Suspect]
     Active Substance: AZACITIDINE
     Dosage: 37.5 MG/M2
     Route: 041
     Dates: start: 20120802, end: 20120808
  13. VIDAZA [Suspect]
     Active Substance: AZACITIDINE
     Dosage: 50 MG/M2
     Route: 041
     Dates: start: 20130809, end: 20130815
  14. VIDAZA [Suspect]
     Active Substance: AZACITIDINE
     Dosage: 40 MG/M2
     Route: 041
     Dates: start: 20140226, end: 20140304
  15. VIDAZA [Suspect]
     Active Substance: AZACITIDINE
     Dosage: 40 MG/M2
     Route: 041
     Dates: start: 20140326, end: 20140328
  16. VIDAZA [Suspect]
     Active Substance: AZACITIDINE
     Dosage: 50 MG/M2
     Route: 041
     Dates: start: 20130213, end: 20130219
  17. VIDAZA [Suspect]
     Active Substance: AZACITIDINE
     Dosage: 50 MG/M2
     Route: 041
     Dates: start: 20130410, end: 20130416
  18. VIDAZA [Suspect]
     Active Substance: AZACITIDINE
     Dosage: 40 MG/M2
     Route: 041
     Dates: start: 20131016, end: 20131022
  19. VIDAZA [Suspect]
     Active Substance: AZACITIDINE
     Dosage: 40 MG/M2
     Route: 041
     Dates: start: 20131220, end: 20131226
  20. ALLOPURINOL. [Concomitant]
     Active Substance: ALLOPURINOL
     Indication: PRODUCT USED FOR UNKNOWN INDICATION
     Route: 048
  21. URSODEOXYCHOLIC ACID [Concomitant]
     Active Substance: URSODIOL
     Indication: PRODUCT USED FOR UNKNOWN INDICATION
     Route: 048
  22. VIDAZA [Suspect]
     Active Substance: AZACITIDINE
     Dosage: 37.5 MG/M2
     Route: 041
     Dates: start: 20120607, end: 20120613
  23. VIDAZA [Suspect]
     Active Substance: AZACITIDINE
     Dosage: 50 MG/M2
     Route: 041
     Dates: start: 20130712, end: 20130718
  24. VIDAZA [Suspect]
     Active Substance: AZACITIDINE
     Dosage: 37.5 MG/M2
     Route: 041
     Dates: start: 20121010, end: 20121016
  25. VIDAZA [Suspect]
     Active Substance: AZACITIDINE
     Dosage: 50 MG/M2
     Route: 041
     Dates: start: 20130116, end: 20130122
  26. VIDAZA [Suspect]
     Active Substance: AZACITIDINE
     Dosage: 40 MG/M2
     Route: 041
     Dates: start: 20140129, end: 20140204
  27. DEFERASIROX [Concomitant]
     Active Substance: DEFERASIROX
     Indication: PRODUCT USED FOR UNKNOWN INDICATION
     Dosage: 1000 MILLIGRAM
     Route: 048
     Dates: start: 20130509
  28. VIDAZA [Suspect]
     Active Substance: AZACITIDINE
     Dosage: 50 MG/M2
     Route: 041
     Dates: start: 20121219, end: 20121225
  29. VIDAZA [Suspect]
     Active Substance: AZACITIDINE
     Dosage: 50 MG/M2
     Route: 041
     Dates: start: 20130614, end: 20130620
  30. VIDAZA [Suspect]
     Active Substance: AZACITIDINE
     Dosage: 40 MG/M2
     Route: 041
     Dates: start: 20131120, end: 20131126
  31. MAGNESIUM OXIDE. [Concomitant]
     Active Substance: MAGNESIUM OXIDE
     Indication: PRODUCT USED FOR UNKNOWN INDICATION
     Dosage: 2 GRAM
     Route: 048
  32. QUETIAPINE FUMARATE. [Concomitant]
     Active Substance: QUETIAPINE FUMARATE
     Indication: PRODUCT USED FOR UNKNOWN INDICATION
     Dosage: 25 MILLIGRAM
     Route: 048
     Dates: end: 20120711

REACTIONS (3)
  - Pneumonia [Recovered/Resolved]
  - Pneumonia aspiration [Recovered/Resolved]
  - Febrile neutropenia [Recovered/Resolved]

NARRATIVE: CASE EVENT DATE: 20130605
